FAERS Safety Report 12842637 (Version 3)
Quarter: 2020Q2

REPORT INFORMATION
  Report Type: Report from Study
  Country: US (occurrence: US)
  Receive Date: 20161013
  Receipt Date: 20200615
  Transmission Date: 20200713
  Serious: No
  Sender: FDA-Public Use
  Company Number: PHHY2016US139163

PATIENT
  Age: 36 Year
  Sex: Male
  Weight: 98.88 kg

DRUGS (1)
  1. GILENYA [Suspect]
     Active Substance: FINGOLIMOD HYDROCHLORIDE
     Indication: MULTIPLE SCLEROSIS
     Dosage: 0.5 MG, QD
     Route: 048
     Dates: start: 20150919

REACTIONS (1)
  - Dysplastic naevus [Recovered/Resolved with Sequelae]

NARRATIVE: CASE EVENT DATE: 20161006
